FAERS Safety Report 23118295 (Version 3)
Quarter: 2023Q4

REPORT INFORMATION
  Report Type: Report from Study
  Country: BE (occurrence: BE)
  Receive Date: 20231028
  Receipt Date: 20231122
  Transmission Date: 20240109
  Serious: Yes (Other)
  Sender: FDA-Public Use
  Company Number: BE-ABBVIE-5452579

PATIENT
  Age: 73 Year
  Sex: Male

DRUGS (14)
  1. CARBIDOPA\LEVODOPA [Suspect]
     Active Substance: CARBIDOPA\LEVODOPA
     Indication: Parkinson^s disease
     Dosage: MD: 5.0 ML, CD: 2.3 ML/H, ED: 1.0 ML DURING 16 HOURS
     Route: 050
     Dates: start: 20231003, end: 20231006
  2. CARBIDOPA\LEVODOPA [Suspect]
     Active Substance: CARBIDOPA\LEVODOPA
     Dosage: MD: 5.5 ML, CD: 3.6 ML/H, ED: 1.5 ML DURING 16 HOURS
     Route: 050
     Dates: start: 20231011, end: 20231102
  3. CARBIDOPA\LEVODOPA [Suspect]
     Active Substance: CARBIDOPA\LEVODOPA
     Dosage: MD: 5.0 ML, CD: 2.5 ML/H, ED: 1.0 ML DURING 16 HOURS
     Route: 050
     Dates: start: 20231006, end: 20231010
  4. CARBIDOPA\LEVODOPA [Suspect]
     Active Substance: CARBIDOPA\LEVODOPA
     Dosage: MD: 5.0 ML, CD: 3.5 ML/H, ED: 1.3 ML DURING 16 HOURS
     Route: 050
     Dates: start: 20231010, end: 20231011
  5. CARBIDOPA\LEVODOPA [Suspect]
     Active Substance: CARBIDOPA\LEVODOPA
     Dosage: MD: 6.0 ML, CD: 3.8 ML/H, ED: 1.5 ML DURING 16 HOURS
     Route: 050
     Dates: start: 20231102, end: 20231108
  6. CARBIDOPA\LEVODOPA [Suspect]
     Active Substance: CARBIDOPA\LEVODOPA
     Dosage: MD: 6.0 ML, CD: 4.3 ML/H, ED: 1.5 ML DURING 16 HOURS
     Route: 050
     Dates: start: 20231117
  7. CARBIDOPA\LEVODOPA [Suspect]
     Active Substance: CARBIDOPA\LEVODOPA
     Dosage: MD: 6.0 ML, CD: 4.1 ML/H, ED: 1.5 ML DURING 16 HOURS
     Route: 050
     Dates: start: 20231108, end: 20231117
  8. BISOPROLOL [Concomitant]
     Active Substance: BISOPROLOL\BISOPROLOL FUMARATE
     Indication: Hypertension
  9. PRAMIPEXOLE [Concomitant]
     Active Substance: PRAMIPEXOLE
     Indication: Parkinson^s disease
     Dosage: 3.15 MG RETARD?FREQUENCY TEXT: IN THE EVENING
  10. SIMVASTATIN [Concomitant]
     Active Substance: SIMVASTATIN
     Indication: Hypercholesterolaemia
  11. ESOMEPRAZOLE [Concomitant]
     Active Substance: ESOMEPRAZOLE
     Indication: Gastrooesophageal reflux disease
     Dosage: FREQUENCY TEXT: AT BREAKFAST
  12. XADAGO [Concomitant]
     Active Substance: SAFINAMIDE MESYLATE
     Indication: Parkinson^s disease
     Dosage: FREQUENCY TEXT: IN THE MORNING
  13. STALEVO [Concomitant]
     Active Substance: CARBIDOPA\ENTACAPONE\LEVODOPA
     Indication: Parkinson^s disease
     Dosage: FREQUENCY TEXT: 3, 6, 9, 12, 15, 18, 21 H
  14. ASPIRIN [Concomitant]
     Active Substance: ASPIRIN
     Indication: Cardiovascular event prophylaxis

REACTIONS (12)
  - Device dislocation [Recovered/Resolved]
  - Limb discomfort [Unknown]
  - Therapeutic product effect incomplete [Unknown]
  - Mobility decreased [Unknown]
  - On and off phenomenon [Unknown]
  - Freezing phenomenon [Unknown]
  - Gait disturbance [Unknown]
  - Malaise [Unknown]
  - Unevaluable event [Unknown]
  - Muscle rigidity [Unknown]
  - Therapeutic product effect delayed [Unknown]
  - Anxiety [Unknown]

NARRATIVE: CASE EVENT DATE: 20230101
